FAERS Safety Report 6046593-2 (Version None)
Quarter: 2009Q1

REPORT INFORMATION
  Report Type: 
  Country: None (occurrence: None)
  Receive Date: 20090122
  Receipt Date: 20090112
  Transmission Date: 20090719
  Serious: Yes (Hospitalization, Other)
  Sender: FDA-Public Use
  Company Number: PHHY2008GB23823

PATIENT
  Sex: Male

DRUGS (5)
  1. CLOZARIL [Suspect]
     Indication: SCHIZOPHRENIA
     Dosage: 75 MG MANE
     Route: 048
     Dates: start: 20080923
  2. CLOZARIL [Suspect]
     Dosage: 175 MG QHS
     Route: 048
     Dates: start: 20081014
  3. CLOZARIL [Suspect]
     Route: 048
  4. ANTIBIOTICS [Concomitant]
     Dosage: UNK
  5. LANSOPRAZOLE [Concomitant]
     Indication: GASTROOESOPHAGEAL REFLUX DISEASE
     Dosage: 50 MG
     Route: 048
     Dates: start: 20000101

REACTIONS (15)
  - CLOSTRIDIAL INFECTION [None]
  - COLON OPERATION [None]
  - COLOSTOMY [None]
  - CONSTIPATION [None]
  - DEHYDRATION [None]
  - GASTROINTESTINAL INFECTION [None]
  - ILEUS PARALYTIC [None]
  - MECHANICAL VENTILATION [None]
  - MEGACOLON [None]
  - NEUTROPHIL COUNT INCREASED [None]
  - ORTHOSTATIC HYPOTENSION [None]
  - PLATELET COUNT DECREASED [None]
  - SEDATION [None]
  - UNRESPONSIVE TO STIMULI [None]
  - WHITE BLOOD CELL COUNT INCREASED [None]
